FAERS Safety Report 6437730-6 (Version None)
Quarter: 2009Q4

REPORT INFORMATION
  Report Type: 
  Country: None (occurrence: None)
  Receive Date: 20091112
  Receipt Date: 20091019
  Transmission Date: 20100525
  Serious: Yes (Death)
  Sender: FDA-Public Use
  Company Number: FR-SANOFI-AVENTIS-200922041GDDC

PATIENT

DRUGS (3)
  1. GLIBENCLAMIDE [Suspect]
  2. METFORMIN HYDROCHLORIDE [Suspect]
     Route: 048
  3. PIOGLITAZONE [Suspect]
     Route: 048

REACTIONS (1)
  - HAEMORRHAGIC STROKE [None]
